FAERS Safety Report 7027485-9 (Version None)
Quarter: 2010Q3

REPORT INFORMATION
  Report Type: 
  Country: None (occurrence: None)
  Receive Date: 20100930
  Receipt Date: 20100930
  Transmission Date: 20110219
  Serious: Yes (Hospitalization)
  Sender: FDA-Public Use
  Company Number: None

PATIENT
  Sex: Female
  Weight: 75 kg

DRUGS (12)
  1. FLUOROURACIL [Suspect]
     Dosage: 2400 MG
  2. LEUCOVORIN CALCIUM [Suspect]
     Dosage: 400 MG
  3. ELOXATIN [Suspect]
     Dosage: 85 MG
  4. ASPIRIN [Concomitant]
  5. CARDIZEM [Concomitant]
  6. FISH OIL [Concomitant]
  7. IBUPROFEN [Concomitant]
  8. NEXIUM [Concomitant]
  9. PAROXETINE [Concomitant]
  10. PLAVIX [Concomitant]
  11. SYNTHROID [Concomitant]
  12. IRON [Concomitant]

REACTIONS (5)
  - DEHYDRATION [None]
  - DYSPNOEA [None]
  - DYSPNOEA EXERTIONAL [None]
  - HAEMOGLOBIN DECREASED [None]
  - PANCYTOPENIA [None]
